FAERS Safety Report 15206735 (Version 1)
Quarter: 2018Q3

REPORT INFORMATION
  Report Type: Spontaneous
  Country: US (occurrence: US)
  Receive Date: 20180727
  Receipt Date: 20180727
  Transmission Date: 20181010
  Serious: Yes (Hospitalization, Other)
  Sender: FDA-Public Use
  Company Number: US-PROCTER_AND_GAMBLE-GS18085638

PATIENT
  Age: 19 Year
  Sex: Female

DRUGS (1)
  1. DIPHENHYDRAMINE HCL [Suspect]
     Active Substance: DIPHENHYDRAMINE HYDROCHLORIDE
     Indication: SUICIDE ATTEMPT
     Dosage: 3000 MILLIGRAM
     Route: 048

REACTIONS (14)
  - Respiratory failure [Unknown]
  - Delirium [Unknown]
  - Stillbirth [Recovered/Resolved]
  - Overdose [Unknown]
  - Confusional state [Unknown]
  - Suicide attempt [Recovered/Resolved]
  - Electrocardiogram QRS complex prolonged [Unknown]
  - Vaginal haemorrhage [Unknown]
  - Maternal exposure during pregnancy [Unknown]
  - Foetal death [Recovered/Resolved]
  - Tachycardia [Unknown]
  - Mucosal dryness [Unknown]
  - Psychomotor hyperactivity [Unknown]
  - Premature labour [Recovered/Resolved]
